FAERS Safety Report 7572387-2 (Version None)
Quarter: 2011Q2

REPORT INFORMATION
  Report Type: 
  Country: None (occurrence: None)
  Receive Date: 20110624
  Receipt Date: 20110621
  Transmission Date: 20111010
  Serious: Yes (Other)
  Sender: FDA-Public Use
  Company Number: PHHY2010BR43079

PATIENT
  Sex: Male

DRUGS (3)
  1. ACETAMINOPHEN AND CODEINE PHOSPHATE [Concomitant]
     Indication: BONE MARROW DISORDER
     Dosage: 3 DF, QD
  2. FORADIL [Suspect]
     Dosage: 12 UG, BID
  3. THALIDOMIDE [Concomitant]
     Indication: BONE MARROW DISORDER
     Dosage: 1 DF, QD

REACTIONS (2)
  - LEUKAEMIA [None]
  - MULTIPLE MYELOMA [None]
